FAERS Safety Report 4914144-9 (Version None)
Quarter: 2006Q1

REPORT INFORMATION
  Report Type: 
  Country: None (occurrence: None)
  Receive Date: 20060216
  Receipt Date: 20060214
  Transmission Date: 20060701
  Serious: Yes (Other)
  Sender: FDA-Public Use
  Company Number: 200610757EU

PATIENT
  Age: 42 Year
  Sex: Female

DRUGS (1)
  1. NICORETTE [Suspect]
     Dosage: 2MG SEE DOSAGE TEXT
     Route: 002
     Dates: start: 20010101

REACTIONS (2)
  - DEPENDENCE [None]
  - MEDICATION ERROR [None]
